FAERS Safety Report 18892865 (Version 1)
Quarter: 2021Q1

REPORT INFORMATION
  Report Type: Spontaneous
  Country: KR (occurrence: KR)
  Receive Date: 20210215
  Receipt Date: 20210215
  Transmission Date: 20210420
  Serious: Yes (Hospitalization, Other)
  Sender: FDA-Public Use
  Company Number: KR-ALVOGEN-2021-ALVOGEN-116500

PATIENT
  Age: 38 Year
  Sex: Female

DRUGS (1)
  1. DOXORUBICIN [Suspect]
     Active Substance: DOXORUBICIN
     Indication: OSTEOSARCOMA

REACTIONS (4)
  - Cardiomyopathy [Unknown]
  - Ischaemic stroke [Recovering/Resolving]
  - Cardiac ventricular thrombosis [Recovering/Resolving]
  - Ventricular dysfunction [Unknown]
